FAERS Safety Report 15108413 (Version 2)
Quarter: 2018Q4

REPORT INFORMATION
  Report Type: Report from Study
  Country: AU (occurrence: AU)
  Receive Date: 20180705
  Receipt Date: 20181005
  Transmission Date: 20190204
  Serious: Yes (Other)
  Sender: FDA-Public Use
  Company Number: AU-REGENERON PHARMACEUTICALS, INC.-2018-27875

PATIENT

DRUGS (2)
  1. EYLEA [Suspect]
     Active Substance: AFLIBERCEPT
     Indication: NEOVASCULAR AGE-RELATED MACULAR DEGENERATION
     Dosage: 7 WEEKLY, LEFT EYE
     Route: 031
  2. EYLEA [Suspect]
     Active Substance: AFLIBERCEPT
     Dosage: MONTHLY (EVERY 4 WEEKS), RIGHT EYE
     Route: 031
     Dates: start: 20171130

REACTIONS (7)
  - Oscillopsia [Unknown]
  - Inappropriate schedule of product administration [Unknown]
  - Night blindness [Unknown]
  - Sinus pain [Unknown]
  - Injection site discomfort [Recovered/Resolved]
  - Eye haemorrhage [Unknown]
  - Eye pain [Unknown]
